FAERS Safety Report 5350969-6 (Version None)
Quarter: 2007Q2

REPORT INFORMATION
  Report Type: 
  Country: None (occurrence: None)
  Receive Date: 20070606
  Receipt Date: 20070523
  Transmission Date: 20071010
  Serious: No
  Sender: FDA-Public Use
  Company Number: TPA2007A01088

PATIENT
  Age: 65 Year
  Sex: Male
  Weight: 88.4514 kg

DRUGS (5)
  1. ROZEREM [Suspect]
     Indication: INSOMNIA
     Dosage: SEE IMAGE
     Route: 048
     Dates: start: 20070522, end: 20070522
  2. ROZEREM [Suspect]
     Indication: INSOMNIA
     Dosage: SEE IMAGE
     Route: 048
     Dates: start: 20070522
  3. ASPIRIN [Concomitant]
  4. MOTRIN [Concomitant]
  5. LIPITOR [Concomitant]

REACTIONS (4)
  - INSOMNIA [None]
  - NO THERAPEUTIC RESPONSE [None]
  - PSYCHOMOTOR HYPERACTIVITY [None]
  - SELF-MEDICATION [None]
